FAERS Safety Report 8767126 (Version 1)
Quarter: 2012Q4

REPORT INFORMATION
  Report Type: 
  Country: US (occurrence: US)
  Receive Date: 20120903
  Receipt Date: 20120903
  Transmission Date: 20130627
  Serious: Yes (Other)
  Sender: FDA-Public Use
  Company Number: US-ELI_LILLY_AND_COMPANY-US201208008485

PATIENT
  Age: 11 Year
  Sex: Male

DRUGS (3)
  1. STRATTERA [Suspect]
     Indication: ATTENTION DEFICIT/HYPERACTIVITY DISORDER
     Dosage: 10 mg, unknown
     Dates: start: 20120717, end: 20120730
  2. STRATTERA [Suspect]
     Dosage: 18 mg, unknown
     Dates: start: 20120731
  3. STRATTERA [Suspect]
     Dosage: 10 mg, unknown

REACTIONS (4)
  - Syncope [Unknown]
  - Orthostatic hypotension [Unknown]
  - Pulse pressure decreased [Unknown]
  - Dizziness [Unknown]
